FAERS Safety Report 6077867-7 (Version None)
Quarter: 2009Q1

REPORT INFORMATION
  Report Type: 
  Country: None (occurrence: None)
  Receive Date: 20090211
  Receipt Date: 20090205
  Transmission Date: 20090719
  Serious: Yes (Other)
  Sender: FDA-Public Use
  Company Number: GB-1168567

PATIENT
  Age: 66 Year
  Sex: Female

DRUGS (1)
  1. CHLORAMPHENICOL [Suspect]
     Indication: EYE PAIN
     Dosage: 1 DF 1 / 2 HOURS OPHTHALMIC
     Route: 047
     Dates: start: 20081109, end: 20081112

REACTIONS (2)
  - HYPERSENSITIVITY [None]
  - SWELLING FACE [None]
